FAERS Safety Report 22252971 (Version 1)
Quarter: 2023Q2

REPORT INFORMATION
  Report Type: Spontaneous
  Country: FR (occurrence: FR)
  Receive Date: 20230426
  Receipt Date: 20230426
  Transmission Date: 20230721
  Serious: Yes (Other)
  Sender: FDA-Public Use
  Company Number: None

PATIENT
  Age: 54 Year
  Sex: Female
  Weight: 83 kg

DRUGS (9)
  1. ETOPOSIDE PHOSPHATE [Suspect]
     Active Substance: ETOPOSIDE PHOSPHATE
     Indication: Lung adenocarcinoma stage I
     Dosage: 2ND LINE TREATMENT
     Route: 042
     Dates: start: 20220830
  2. CARBOPLATIN [Suspect]
     Active Substance: CARBOPLATIN
     Indication: Lung adenocarcinoma stage I
     Dosage: 2ND LINE TREATMENT
     Route: 042
     Dates: start: 20220830
  3. IMFINZI [Suspect]
     Active Substance: DURVALUMAB
     Indication: Lung adenocarcinoma stage I
     Route: 042
     Dates: start: 20220830
  4. IMFINZI [Suspect]
     Active Substance: DURVALUMAB
     Indication: Lung adenocarcinoma stage I
     Dosage: AT REDUCED DOSES
     Dates: start: 20220927
  5. IMFINZI [Suspect]
     Active Substance: DURVALUMAB
     Indication: Lung adenocarcinoma stage I
     Dates: start: 20230103
  6. ONDANSETRON [Concomitant]
     Active Substance: ONDANSETRON
  7. PEGFILGRASTIM [Concomitant]
     Active Substance: PEGFILGRASTIM
     Dosage: PRE-FILLED SYRINGE
  8. EMEND [Concomitant]
     Active Substance: APREPITANT
  9. Solupred [Concomitant]

REACTIONS (2)
  - Fatigue [Recovering/Resolving]
  - Pancytopenia [Unknown]

NARRATIVE: CASE EVENT DATE: 20220907
